FAERS Safety Report 7650575-4 (Version None)
Quarter: 2011Q3

REPORT INFORMATION
  Report Type: 
  Country: None (occurrence: None)
  Receive Date: 20110802
  Receipt Date: 20110628
  Transmission Date: 20111222
  Serious: Yes (Other)
  Sender: FDA-Public Use
  Company Number: DE-UCBSA-036750

PATIENT
  Sex: Male
  Weight: 86.3 kg

DRUGS (4)
  1. METHYLPHENIDATE HCL [Suspect]
     Route: 048
     Dates: start: 20110407, end: 20110408
  2. ALCOHOL [Suspect]
     Route: 048
     Dates: start: 20110304, end: 20110305
  3. METHYLPHENIDATE HCL [Suspect]
     Indication: ATTENTION DEFICIT/HYPERACTIVITY DISORDER
     Dosage: 30 MG
     Dates: start: 20110304, end: 20110305
  4. ALCOHOL [Suspect]
     Route: 048
     Dates: start: 20110408, end: 20110408

REACTIONS (12)
  - WRONG DRUG ADMINISTERED [None]
  - DYSARTHRIA [None]
  - PSYCHOTIC DISORDER [None]
  - AGGRESSION [None]
  - SUICIDAL IDEATION [None]
  - AFFECTIVE DISORDER [None]
  - SCHIZOPHRENIFORM DISORDER [None]
  - PARANOIA [None]
  - LOGORRHOEA [None]
  - ANXIETY [None]
  - CONFUSIONAL STATE [None]
  - RESTLESSNESS [None]
